FAERS Safety Report 10198647 (Version 1)
Quarter: 2014Q2

REPORT INFORMATION
  Report Type: Spontaneous
  Country: US (occurrence: None)
  Receive Date: 20140523
  Receipt Date: 20140523
  Transmission Date: 20141212
  Serious: Yes (Life-Threatening, Hospitalization, Disabling, Other)
  Sender: FDA-Public Use
  Company Number: None

PATIENT
  Age: 55 Year
  Sex: Male
  Weight: 120.66 kg

DRUGS (1)
  1. AMIODARONE [Suspect]
     Indication: HEART RATE ABNORMAL
     Dosage: ONE 200 MG TWICE A DAY; 2 PILLS
     Route: 048
     Dates: start: 201202, end: 201210

REACTIONS (3)
  - Cough [None]
  - Dyspnoea [None]
  - Dizziness [None]
